FAERS Safety Report 6841208-5 (Version None)
Quarter: 2010Q3

REPORT INFORMATION
  Report Type: 
  Country: None (occurrence: None)
  Receive Date: 20100714
  Receipt Date: 20070702
  Transmission Date: 20110219
  Serious: Yes (Other)
  Sender: FDA-Public Use
  Company Number: US-PFIZER INC-2007055514

PATIENT
  Sex: Male

DRUGS (1)
  1. VARENICLINE [Suspect]

REACTIONS (3)
  - DIZZINESS [None]
  - MUSCULOSKELETAL STIFFNESS [None]
  - NECK PAIN [None]
